FAERS Safety Report 5872960-3 (Version None)
Quarter: 2008Q3

REPORT INFORMATION
  Report Type: 
  Country: None (occurrence: None)
  Receive Date: 20080905
  Receipt Date: 20080826
  Transmission Date: 20090109
  Serious: Yes (Other)
  Sender: FDA-Public Use
  Company Number: DE-PFIZER INC-2008071708

PATIENT
  Sex: Female
  Weight: 66 kg

DRUGS (1)
  1. CHANTIX [Suspect]
     Indication: SMOKING CESSATION THERAPY
     Route: 048

REACTIONS (4)
  - NAUSEA [None]
  - NERVOUS SYSTEM DISORDER [None]
  - NIGHTMARE [None]
  - SLEEP DISORDER [None]
